FAERS Safety Report 7531137-6 (Version None)
Quarter: 2011Q2

REPORT INFORMATION
  Report Type: 
  Country: None (occurrence: None)
  Receive Date: 20110608
  Receipt Date: 20110118
  Transmission Date: 20111010
  Serious: Yes (Hospitalization)
  Sender: FDA-Public Use
  Company Number: US-BAYER-201037252NA

PATIENT
  Age: 25 Year
  Sex: Female
  Weight: 86.168 kg

DRUGS (5)
  1. YASMIN [Suspect]
     Indication: CONTRACEPTION
     Dates: start: 20080901, end: 20090401
  2. FERROUS SULFATE TAB [Concomitant]
  3. RANITIDINE [Concomitant]
     Indication: DYSPEPSIA
  4. PRENATAL VITAMINS [VIT C,VIT H,MIN NOS,VIT PP,RETINOL,VIT E,VIT B NOS, [Concomitant]
  5. ERRIN [Concomitant]
     Indication: CONTRACEPTION

REACTIONS (3)
  - CHOLECYSTITIS CHRONIC [None]
  - CHOLELITHIASIS [None]
  - BILIARY COLIC [None]
